FAERS Safety Report 15254842 (Version 1)
Quarter: 2018Q3

REPORT INFORMATION
  Report Type: Spontaneous
  Country: US (occurrence: US)
  Receive Date: 20180808
  Receipt Date: 20180808
  Transmission Date: 20181010
  Serious: Yes (Other)
  Sender: FDA-Public Use
  Company Number: US-BAYER-2018-146875

PATIENT
  Sex: Female

DRUGS (1)
  1. GADAVIST [Suspect]
     Active Substance: GADOBUTROL
     Dosage: UNK UNK, ONCE

REACTIONS (5)
  - Pruritus [None]
  - Urticaria [None]
  - Blood pressure decreased [None]
  - Dyspnoea [None]
  - Eye swelling [None]

NARRATIVE: CASE EVENT DATE: 201807
